FAERS Safety Report 20967282 (Version 2)
Quarter: 2022Q3

REPORT INFORMATION
  Report Type: Spontaneous
  Country: US (occurrence: None)
  Receive Date: 20220616
  Receipt Date: 20220816
  Transmission Date: 20221027
  Serious: No
  Sender: FDA-Public Use
  Company Number: 2022A219255

PATIENT
  Age: 615 Month
  Sex: Male
  Weight: 83.9 kg

DRUGS (1)
  1. FASENRA [Suspect]
     Active Substance: BENRALIZUMAB
     Indication: Asthma
     Route: 058
     Dates: start: 20220317

REACTIONS (11)
  - Pain [Recovered/Resolved]
  - Pain in extremity [Recovering/Resolving]
  - Nerve injury [Recovering/Resolving]
  - Dizziness [Recovering/Resolving]
  - Dizziness [Recovering/Resolving]
  - Loss of consciousness [Recovering/Resolving]
  - Malaise [Recovering/Resolving]
  - Abdominal discomfort [Recovered/Resolved]
  - Dyspnoea [Recovered/Resolved]
  - Product dose omission issue [Unknown]
  - Illness [Recovering/Resolving]

NARRATIVE: CASE EVENT DATE: 20220501
